FAERS Safety Report 12991583 (Version 22)
Quarter: 2021Q2

REPORT INFORMATION
  Report Type: Spontaneous
  Country: US (occurrence: US)
  Receive Date: 20161201
  Receipt Date: 20210520
  Transmission Date: 20210716
  Serious: Yes (Hospitalization, Other)
  Sender: FDA-Public Use
  Company Number: US-PFIZER INC-2016559113

PATIENT
  Age: 38 Year
  Sex: Female
  Weight: 63 kg

DRUGS (8)
  1. ALPRAZOLAM. [Concomitant]
     Active Substance: ALPRAZOLAM
     Indication: SLEEP DISORDER
     Dosage: 0.25 MG, 3X/DAY
     Route: 048
  2. LYRICA [Suspect]
     Active Substance: PREGABALIN
     Dosage: 25 MG, 2X/DAY
     Route: 048
     Dates: start: 200902
  3. ALPRAZOLAM. [Concomitant]
     Active Substance: ALPRAZOLAM
     Dosage: 0.25 MG, DAILY (1 TABLET BY MOUTH AT BEDTIME)
     Route: 048
  4. LYRICA [Suspect]
     Active Substance: PREGABALIN
     Dosage: 75 MG
  5. IBUPROFEN. [Concomitant]
     Active Substance: IBUPROFEN
     Indication: FIBROMYALGIA
     Dosage: 800 MG, 3X/DAY
     Route: 048
  6. TRAMADOL. [Concomitant]
     Active Substance: TRAMADOL
     Indication: PAIN
     Dosage: 50 MG, 3X/DAY(AS NEEDED)
     Route: 048
  7. LYRICA [Suspect]
     Active Substance: PREGABALIN
     Indication: FIBROMYALGIA
     Dosage: 50 MG, 3X/DAY
     Route: 048
     Dates: start: 200810
  8. TRAMADOL. [Concomitant]
     Active Substance: TRAMADOL
     Indication: FIBROMYALGIA
     Dosage: 50 MG, AS NEEDED (1 TABLET ORALLY EVERY 6 HOURS)
     Route: 048

REACTIONS (35)
  - Asthenia [Unknown]
  - Hunger [Recovered/Resolved]
  - Crying [Unknown]
  - Pain [Unknown]
  - Depression [Unknown]
  - Nervousness [Unknown]
  - Withdrawal syndrome [Unknown]
  - Tibia fracture [Recovering/Resolving]
  - Fall [Unknown]
  - Rash [Unknown]
  - Carpal tunnel syndrome [Not Recovered/Not Resolved]
  - Insomnia [Unknown]
  - Dizziness [Recovered/Resolved]
  - Fluid retention [Recovering/Resolving]
  - Injury [Unknown]
  - Fatigue [Unknown]
  - Myofascial pain syndrome [Unknown]
  - Visual impairment [Unknown]
  - Increased appetite [Unknown]
  - Hypertension [Unknown]
  - Therapeutic product effect incomplete [Unknown]
  - Feeling abnormal [Unknown]
  - Illness [Unknown]
  - Logorrhoea [Unknown]
  - Anxiety [Unknown]
  - Impaired work ability [Unknown]
  - Migraine [Unknown]
  - Urticaria [Unknown]
  - Lower limb fracture [Recovering/Resolving]
  - Weight increased [Unknown]
  - Muscle disorder [Unknown]
  - Ankle fracture [Unknown]
  - Joint injury [Recovered/Resolved]
  - Daydreaming [Unknown]
  - Therapeutic response unexpected [Unknown]

NARRATIVE: CASE EVENT DATE: 200902
